FAERS Safety Report 9547349 (Version 2)
Quarter: 2013Q4

REPORT INFORMATION
  Report Type: Spontaneous
  Country: IT (occurrence: IT)
  Receive Date: 20130924
  Receipt Date: 20131015
  Transmission Date: 20140711
  Serious: Yes (Other)
  Sender: FDA-Public Use
  Company Number: IT-ROCHE-1278500

PATIENT
  Age: 42 Year
  Sex: Female

DRUGS (37)
  1. VALGANCICLOVIR [Suspect]
     Indication: INFECTION REACTIVATION
     Route: 048
  2. GANCICLOVIR [Concomitant]
     Route: 042
  3. GANCICLOVIR [Concomitant]
     Route: 042
  4. TENOFOVIR [Concomitant]
     Indication: ANTIRETROVIRAL THERAPY
     Dosage: COMBINED ANTIRETROVIRAL THERAPY (CART) WITH EMTRICITABINE AND ATAZANAVIR AND THEN LATER WAS SUSPENDE
     Route: 065
     Dates: end: 200801
  5. TENOFOVIR [Concomitant]
     Dosage: RESTARTED AFTER 4 WEEKS OF WITHDRAWAL
     Route: 065
  6. TENOFOVIR [Concomitant]
     Dosage: IN APR/2008 COMBINED ANTIRETROVIRAL THERAPY (CART) WITH EMTRICITABINE AND ATAZANAVIR WAS ONGOING (3
     Route: 065
  7. TENOFOVIR [Concomitant]
     Dosage: IN MAY 2008, COMBINED ANTIRETROVIRAL THERAPY (CART) WITH EMTRICITABINE AND ATAZANAVIR WAS ONGOING FO
     Route: 065
  8. TENOFOVIR [Concomitant]
     Dosage: DURING FOLLOW UP OF THIRD RELAPSE, COMBINED ANTIRETROVIRAL THERAPY (CART) WITH EMTRICITABINE AND ATA
     Route: 065
  9. TENOFOVIR [Concomitant]
     Dosage: COMBINED ANTIRETROVIRAL THERAPY (CART) WAS GIVEN ALONG WITH LAMIVUDINE AND ABACAVIR.
     Route: 065
     Dates: start: 200808
  10. ATAZANAVIR [Concomitant]
     Indication: ANTIRETROVIRAL THERAPY
     Dosage: COMBINED ANTIRETROVIRAL THERAPY (CART) WITH EMTRICITABINE AND ATAZANAVIR AND THEN LATER WAS SUSPENDE
     Route: 065
     Dates: start: 200801
  11. ATAZANAVIR [Concomitant]
     Dosage: RESTARTED AFTER 4 WEEKS OF WITHDRAWAL
     Route: 065
  12. ATAZANAVIR [Concomitant]
     Dosage: IN APR/2008 COMBINED ANTIRETROVIRAL THERAPY (CART) WITH EMTRICITABINE AND ATAZANAVIR WAS ONGOING (3
     Route: 065
  13. ATAZANAVIR [Concomitant]
     Dosage: IN MAY 2008, COMBINED ANTIRETROVIRAL THERAPY (CART) WITH EMTRICITABINE AND ATAZANAVIR WAS ONGOING FO
     Route: 065
  14. ATAZANAVIR [Concomitant]
     Dosage: DURING FOLLOW UP OF THIRD RELAPSE, COMBINED ANTIRETROVIRAL THERAPY (CART) WITH EMTRICITABINE AND ATA
     Route: 065
  15. ATAZANAVIR [Concomitant]
     Dosage: COMBINED ANTIRETROVIRAL THERAPY (CART) WAS GIVEN ALONG WITH LAMIVUDINE AND ABACAVIR.
     Route: 065
     Dates: start: 200808
  16. EMTRICITABINE [Concomitant]
     Indication: ANTIRETROVIRAL THERAPY
     Dosage: COMBINED ANTIRETROVIRAL THERAPY (CART) WITH EMTRICITABINE AND ATAZANAVIR AND THEN LATER WAS SUSPENDE
     Route: 065
     Dates: start: 200801
  17. EMTRICITABINE [Concomitant]
     Dosage: RESTARTED AFTER 4 WEEKS OF WITHDRAWAL
     Route: 065
  18. EMTRICITABINE [Concomitant]
     Dosage: IN APR/2008 COMBINED ANTIRETROVIRAL THERAPY (CART) WITH EMTRICITABINE AND ATAZANAVIR WAS ONGOING (3
     Route: 065
  19. EMTRICITABINE [Concomitant]
     Dosage: IN MAY 2008, COMBINED ANTIRETROVIRAL THERAPY (CART) WITH EMTRICITABINE AND ATAZANAVIR WAS ONGOING FO
     Route: 065
  20. EMTRICITABINE [Concomitant]
     Dosage: DURING FOLLOW UP OF THIRD RELAPSE, COMBINED ANTIRETROVIRAL THERAPY (CART) WITH EMTRICITABINE AND ATA
     Route: 065
  21. ACYCLOVIR [Concomitant]
     Route: 042
  22. ACYCLOVIR [Concomitant]
     Route: 048
  23. PREDNISOLONE [Concomitant]
     Route: 048
  24. PREDNISOLONE [Concomitant]
     Route: 048
  25. PREDNISOLONE [Concomitant]
     Route: 048
  26. PREDNISOLONE [Concomitant]
     Route: 048
  27. PREDNISOLONE [Concomitant]
     Route: 048
  28. PREDNISOLONE [Concomitant]
     Route: 048
  29. PREDNISOLONE [Concomitant]
     Dosage: MAINTAINANCE AT 2.5 MG TO 5 MG
     Route: 048
  30. PREDNISOLONE [Concomitant]
     Dosage: INCREASED TO12.5 MG TO 25 MG FOR SHORT PERIODS
     Route: 048
  31. METHYLPREDNISOLONE [Concomitant]
     Route: 042
  32. METHYLPREDNISOLONE [Concomitant]
     Route: 042
  33. METHYLPREDNISOLONE [Concomitant]
     Route: 042
  34. METHYLPREDNISOLONE [Concomitant]
     Dosage: MAINTAINANCE DOSE
     Route: 042
  35. METHYLPREDNISOLONE [Concomitant]
     Route: 042
  36. LAMIVUDINE [Concomitant]
     Indication: ANTIRETROVIRAL THERAPY
     Route: 065
     Dates: start: 200808
  37. IMMUNOGLOBULIN [Concomitant]
     Route: 042

REACTIONS (2)
  - Anaemia [Recovered/Resolved]
  - Leukopenia [Recovered/Resolved]
